FAERS Safety Report 14707119 (Version 1)
Quarter: 2018Q2

REPORT INFORMATION
  Report Type: Spontaneous
  Country: JP (occurrence: JP)
  Receive Date: 20180403
  Receipt Date: 20180403
  Transmission Date: 20180711
  Serious: Yes (Other)
  Sender: FDA-Public Use
  Company Number: JP-CONCORDIA PHARMACEUTICALS INC.-E2B_00010817

PATIENT
  Age: 31 Year
  Sex: Female

DRUGS (6)
  1. METHOTREXATE. [Concomitant]
     Active Substance: METHOTREXATE
     Indication: SARCOIDOSIS
  2. PREDNISOLONE. [Suspect]
     Active Substance: PREDNISOLONE
     Indication: SARCOIDOSIS
  3. METHYLPREDNISOLONE. [Suspect]
     Active Substance: METHYLPREDNISOLONE
     Indication: SARCOIDOSIS
  4. METHYLPREDNISOLONE. [Suspect]
     Active Substance: METHYLPREDNISOLONE
     Indication: MYOPATHY
     Dosage: PULSE
  5. METHOTREXATE. [Concomitant]
     Active Substance: METHOTREXATE
     Indication: MYOPATHY
  6. PREDNISOLONE. [Suspect]
     Active Substance: PREDNISOLONE
     Indication: MYOPATHY

REACTIONS (2)
  - Psychotic disorder [Recovering/Resolving]
  - Suicide attempt [Unknown]
